FAERS Safety Report 4714087-X (Version None)
Quarter: 2005Q3

REPORT INFORMATION
  Report Type: 
  Country: None (occurrence: None)
  Receive Date: 20050712
  Receipt Date: 20050629
  Transmission Date: 20060218
  Serious: Yes (Other)
  Sender: FDA-Public Use
  Company Number: 2005094830

PATIENT
  Age: 37 Year
  Sex: Female

DRUGS (1)
  1. DEPO-PROVERA [Suspect]
     Indication: CONTRACEPTION
     Dosage: 150 MG (150 MG, INJ. EVERY THREE MONTHS), INTRAMUSCULAR
     Route: 030
     Dates: start: 20050313, end: 20050313

REACTIONS (3)
  - AMENORRHOEA [None]
  - HYPOTHYROIDISM [None]
  - HYPOTONIA [None]
